FAERS Safety Report 5532249-9 (Version None)
Quarter: 2007Q4

REPORT INFORMATION
  Report Type: 
  Country: None (occurrence: None)
  Receive Date: 20071203
  Receipt Date: 20071127
  Transmission Date: 20080405
  Serious: Yes (Death)
  Sender: FDA-Public Use
  Company Number: US-ASTRAZENECA-2007AC02320

PATIENT
  Age: 22 Year
  Sex: Female

DRUGS (3)
  1. LIDOCAINE [Suspect]
     Indication: ANAESTHESIA
     Route: 061
  2. TETRACAINE [Concomitant]
     Indication: ANAESTHESIA
     Route: 061
  3. PHENYLEPHRINE [Concomitant]
     Indication: ANAESTHESIA
     Route: 061

REACTIONS (1)
  - DRUG TOXICITY [None]
